FAERS Safety Report 5923006-X (Version None)
Quarter: 2008Q4

REPORT INFORMATION
  Report Type: 
  Country: None (occurrence: None)
  Receive Date: 20081018
  Receipt Date: 20081002
  Transmission Date: 20090506
  Serious: Yes (Death, Life-Threatening, Other)
  Sender: FDA-Public Use
  Company Number: JP-PFIZER INC-2008074390

PATIENT
  Age: 75 Year
  Sex: Male
  Weight: 39 kg

DRUGS (3)
  1. CAMPTOSAR [Suspect]
     Indication: GASTRIC CANCER
     Route: 042
     Dates: start: 20080814, end: 20080821
  2. TEGAFUR/GIMERACIL/OTERACIL POTASSIUM [Concomitant]
     Route: 048
     Dates: start: 20080814, end: 20080826
  3. SOLUTIONS FOR PARENTERAL NUTRITION [Concomitant]
     Indication: NUTRITIONAL SUPPORT
     Dates: start: 20080508

REACTIONS (8)
  - HAEMOGLOBIN DECREASED [None]
  - HEPATIC FAILURE [None]
  - INFECTION [None]
  - LEUKOPENIA [None]
  - METABOLIC ACIDOSIS [None]
  - NEUTROPENIA [None]
  - SYSTEMIC INFLAMMATORY RESPONSE SYNDROME [None]
  - THROMBOCYTOPENIA [None]
